FAERS Safety Report 6309374-8 (Version None)
Quarter: 2009Q3

REPORT INFORMATION
  Report Type: 
  Country: None (occurrence: None)
  Receive Date: 20090814
  Receipt Date: 20090805
  Transmission Date: 20100115
  Serious: Yes (Other)
  Sender: FDA-Public Use
  Company Number: US-ROCHE-616580

PATIENT
  Age: 47 Year
  Sex: Female
  Weight: 40.8 kg

DRUGS (2)
  1. BONIVA [Suspect]
     Indication: OSTEOPENIA
     Dosage: OTHER INDICATION: OSTEOPOROSIS
     Route: 048
     Dates: start: 20080805, end: 20090204
  2. BONIVA [Suspect]
     Dosage: LAST DOSE RECEIVED ON 31 JULY 2009
     Route: 048

REACTIONS (3)
  - DIZZINESS [None]
  - SKIN ULCER [None]
  - STAPHYLOCOCCAL INFECTION [None]
